FAERS Safety Report 4288414-4 (Version None)
Quarter: 2004Q1

REPORT INFORMATION
  Report Type: 
  Country: None (occurrence: None)
  Receive Date: 20040209
  Receipt Date: 20030930
  Transmission Date: 20041129
  Serious: No
  Sender: FDA-Public Use
  Company Number: US-GLAXOSMITHKLINE-A0428061A

PATIENT
  Age: 40 Year
  Sex: Male

DRUGS (1)
  1. PAXIL [Suspect]
     Dosage: 10MG PER DAY
     Route: 048
     Dates: start: 20030929

REACTIONS (1)
  - HEART RATE IRREGULAR [None]
